FAERS Safety Report 6383968-6 (Version None)
Quarter: 2009Q4

REPORT INFORMATION
  Report Type: 
  Country: None (occurrence: None)
  Receive Date: 20091001
  Receipt Date: 20090918
  Transmission Date: 20100525
  Serious: Yes (Hospitalization)
  Sender: FDA-Public Use
  Company Number: DK-MYLANLABS-2009S1016491

PATIENT
  Sex: Female
  Weight: 70 kg

DRUGS (2)
  1. SERTRALINE HCL [Suspect]
     Indication: DEPRESSED MOOD
     Route: 048
     Dates: start: 20060815, end: 20061228
  2. SERTRALINE HCL [Suspect]
     Route: 048
     Dates: start: 20060815, end: 20061228

REACTIONS (7)
  - ALOPECIA [None]
  - BRAIN INJURY [None]
  - CONSTIPATION [None]
  - HYPERPARATHYROIDISM [None]
  - NEUROLOGICAL SYMPTOM [None]
  - PERIODONTAL DISEASE [None]
  - RENAL IMPAIRMENT [None]
